FAERS Safety Report 11417005 (Version 4)
Quarter: 2016Q1

REPORT INFORMATION
  Report Type: Spontaneous
  Country: US (occurrence: US)
  Receive Date: 20150825
  Receipt Date: 20160309
  Transmission Date: 20160525
  Serious: Yes (Hospitalization, Other)
  Sender: FDA-Public Use
  Company Number: US-BAYER-2015-407146

PATIENT
  Age: 30 Year
  Sex: Female
  Weight: 70.3 kg

DRUGS (1)
  1. MIRENA [Suspect]
     Active Substance: LEVONORGESTREL
     Indication: CONTRACEPTION
     Dosage: 20 MCG/24HR, CONT
     Route: 015
     Dates: start: 20120524, end: 20140331

REACTIONS (10)
  - Pain [Not Recovered/Not Resolved]
  - Device difficult to use [None]
  - Genital haemorrhage [None]
  - Device issue [Not Recovered/Not Resolved]
  - Uterine perforation [Not Recovered/Not Resolved]
  - Medical device discomfort [Not Recovered/Not Resolved]
  - Laparotomy [None]
  - Post procedural haemorrhage [None]
  - Injury [Not Recovered/Not Resolved]
  - Procedural haemorrhage [None]

NARRATIVE: CASE EVENT DATE: 2014
